FAERS Safety Report 5591066-4 (Version None)
Quarter: 2008Q1

REPORT INFORMATION
  Report Type: 
  Country: None (occurrence: None)
  Receive Date: 20080115
  Receipt Date: 20080109
  Transmission Date: 20080703
  Serious: Yes (Other)
  Sender: FDA-Public Use
  Company Number: PHEH2008US00687

PATIENT
  Sex: Female

DRUGS (1)
  1. RECLAST [Suspect]
     Indication: OSTEOPOROSIS

REACTIONS (6)
  - CHILLS [None]
  - CONDITION AGGRAVATED [None]
  - HEADACHE [None]
  - MITRAL VALVE PROLAPSE [None]
  - PAIN [None]
  - PYREXIA [None]
